FAERS Safety Report 8255643-4 (Version None)
Quarter: 2012Q1

REPORT INFORMATION
  Report Type: 
  Country: None (occurrence: None)
  Receive Date: 20120329
  Receipt Date: 20110603
  Transmission Date: 20120608
  Serious: Yes (Death)
  Sender: FDA-Public Use
  Company Number: IL-REGULIS-0033

PATIENT
  Age: 54 Year
  Sex: Male

DRUGS (2)
  1. FOSCARNET [Suspect]
     Indication: CYTOMEGALOVIRUS INFECTION
  2. GANCICLOVIR [Concomitant]

REACTIONS (1)
  - DEATH [None]
